FAERS Safety Report 8534418-2 (Version None)
Quarter: 2012Q3

REPORT INFORMATION
  Report Type: 
  Country: None (occurrence: None)
  Receive Date: 20120724
  Receipt Date: 20120719
  Transmission Date: 20120928
  Serious: Yes (Other)
  Sender: FDA-Public Use
  Company Number: PHHY2012GB062220

PATIENT
  Age: 74 Year
  Sex: Female

DRUGS (3)
  1. BENDROFLUMETHIAZIDE [Concomitant]
  2. ACETAMINOPHEN AND CODEINE PHOSPHATE [Suspect]
     Indication: NECK PAIN
     Dosage: 5 DF, Q48H
     Route: 048
  3. RAMIPRIL [Concomitant]

REACTIONS (4)
  - DYSPNOEA [None]
  - TREMOR [None]
  - VOMITING [None]
  - PARAESTHESIA [None]
